FAERS Safety Report 15882726 (Version 4)
Quarter: 2019Q1

REPORT INFORMATION
  Report Type: Report from Study
  Country: DE (occurrence: DE)
  Receive Date: 20190129
  Receipt Date: 20190222
  Transmission Date: 20190417
  Serious: Yes (Other)
  Sender: FDA-Public Use
  Company Number: DE-BIOGEN-2019BI00688596

PATIENT
  Age: 31 Year
  Sex: Female
  Weight: 78 kg

DRUGS (3)
  1. KEPPRA [Concomitant]
     Active Substance: LEVETIRACETAM
     Indication: GENERALISED TONIC-CLONIC SEIZURE
     Dosage: BEFORE PREGNANCY
     Route: 048
     Dates: start: 2013, end: 2018
  2. TYSABRI [Suspect]
     Active Substance: NATALIZUMAB
     Indication: MULTIPLE SCLEROSIS
     Route: 042
     Dates: start: 201004, end: 20180525
  3. TYSABRI [Suspect]
     Active Substance: NATALIZUMAB
     Route: 065
     Dates: start: 201004, end: 201805

REACTIONS (4)
  - Foetal heart rate abnormal [Unknown]
  - Maternal exposure during pregnancy [Recovered/Resolved]
  - Generalised tonic-clonic seizure [Unknown]
  - Prescribed underdose [Unknown]

NARRATIVE: CASE EVENT DATE: 20181012
